FAERS Safety Report 14099111 (Version 1)
Quarter: 2017Q4

REPORT INFORMATION
  Report Type: Report from Study
  Country: CO (occurrence: CO)
  Receive Date: 20171017
  Receipt Date: 20171017
  Transmission Date: 20180321
  Serious: Yes (Death, Hospitalization, Other)
  Sender: FDA-Public Use
  Company Number: CO-INCYTE CORPORATION-2017IN008664

PATIENT

DRUGS (1)
  1. JAKAVI [Suspect]
     Active Substance: RUXOLITINIB
     Indication: PRIMARY MYELOFIBROSIS
     Dosage: 5 MG, UNK
     Route: 048
     Dates: start: 20170729

REACTIONS (2)
  - Death [Fatal]
  - Gas gangrene [Unknown]

NARRATIVE: CASE EVENT DATE: 20170813
